FAERS Safety Report 7538368-X (Version None)
Quarter: 2011Q2

REPORT INFORMATION
  Report Type: 
  Country: None (occurrence: None)
  Receive Date: 20110609
  Receipt Date: 20110606
  Transmission Date: 20111010
  Serious: Yes (Life-Threatening, Hospitalization)
  Sender: FDA-Public Use
  Company Number: JP-B.I. PHARMACEUTICALS,INC./RIDGEFIELD-2011-BP-13782NB

PATIENT
  Sex: Female

DRUGS (12)
  1. SIGMART [Concomitant]
     Indication: ANGINA PECTORIS
     Dosage: 10 MG
     Route: 048
  2. CABERGOLINE [Concomitant]
     Indication: PARKINSON'S DISEASE
     Dosage: 1 MG
     Route: 048
     Dates: end: 20110414
  3. MAGNESIUM OXIDE [Concomitant]
     Indication: CONSTIPATION
     Dosage: 1.5 G
     Route: 048
     Dates: end: 20110414
  4. LANIRAPID [Concomitant]
     Indication: ATRIAL FIBRILLATION
     Dosage: 0.5 MG
     Route: 048
     Dates: start: 20110408
  5. CARBIDOPA AND LEVODOPA [Concomitant]
     Indication: PARKINSON'S DISEASE
     Dosage: 300 MG
     Route: 048
  6. BUFFERIN [Suspect]
     Indication: CEREBRAL INFARCTION
     Dosage: 81 MG
     Route: 048
     Dates: end: 20110414
  7. AMLODIPINE [Concomitant]
     Indication: HYPERTENSION
     Dosage: 2.5 MG
     Route: 048
     Dates: end: 20110414
  8. ALDACTONE [Concomitant]
     Indication: CARDIAC FAILURE CHRONIC
     Dosage: 25 MG
     Route: 048
     Dates: start: 20110408, end: 20110414
  9. PRADAXA [Suspect]
     Indication: ATRIAL FIBRILLATION
     Dosage: 220 MG
     Route: 048
     Dates: start: 20110407, end: 20110414
  10. LOSARTAN POTASSIUM [Concomitant]
     Indication: HYPERTENSION
     Dosage: 50 MG
     Route: 048
  11. LASIX [Concomitant]
     Indication: CARDIAC FAILURE CHRONIC
     Dosage: 40 MG
     Route: 048
     Dates: start: 20110407
  12. ALFAROL [Concomitant]
     Indication: OSTEOPOROSIS
     Dosage: 0.5 MG
     Route: 048

REACTIONS (2)
  - SHOCK HAEMORRHAGIC [None]
  - DUODENAL ULCER HAEMORRHAGE [None]
